FAERS Safety Report 8926384 (Version 2)
Quarter: 2012Q4

REPORT INFORMATION
  Report Type: 
  Country: FR (occurrence: FR)
  Receive Date: 20121127
  Receipt Date: 20121206
  Transmission Date: 20130627
  Serious: Yes (Hospitalization)
  Sender: FDA-Public Use
  Company Number: FR-GLAXOSMITHKLINE-B0846233A

PATIENT
  Age: 82 None
  Sex: Male

DRUGS (10)
  1. BECONASE [Suspect]
     Indication: RHINITIS ALLERGIC
     Dosage: 1UNIT Twice per day
     Route: 045
     Dates: end: 20120730
  2. ATACAND [Suspect]
     Indication: HYPERTENSION
     Dosage: 8MG Per day
     Route: 048
     Dates: start: 2009, end: 20120730
  3. ESIDREX [Suspect]
     Indication: HYPERTENSION
     Dosage: 25MG Per day
     Route: 048
     Dates: start: 2006, end: 20120730
  4. DAFALGAN [Suspect]
     Indication: PRODUCT USED FOR UNKNOWN INDICATION
     Dosage: 500MG Six times per day
     Route: 048
     Dates: end: 20120730
  5. LOMUSOL [Suspect]
     Indication: RHINITIS ALLERGIC
     Dosage: 1UNIT Twice per day
     Route: 045
     Dates: end: 20120730
  6. CETIRIZINE [Suspect]
     Indication: RHINITIS ALLERGIC
     Dosage: 10MG Per day
     Route: 048
     Dates: end: 20120730
  7. ECONAZOLE [Suspect]
     Indication: PRODUCT USED FOR UNKNOWN INDICATION
     Dosage: 1APP Per day
     Route: 061
     Dates: start: 20120726, end: 20120730
  8. KARDEGIC [Concomitant]
     Indication: CORONARY ARTERY DISEASE
  9. BISOPROLOL [Concomitant]
     Indication: CORONARY ARTERY DISEASE
  10. TAHOR [Concomitant]
     Indication: CORONARY ARTERY DISEASE

REACTIONS (4)
  - Renal failure acute [Recovered/Resolved]
  - Dehydration [Recovered/Resolved]
  - Rectal haemorrhage [Not Recovered/Not Resolved]
  - Diarrhoea [Recovered/Resolved]
